FAERS Safety Report 6501313-X (Version None)
Quarter: 2009Q4

REPORT INFORMATION
  Report Type: 
  Country: None (occurrence: None)
  Receive Date: 20091215
  Receipt Date: 20091215
  Transmission Date: 20100525
  Serious: Yes (Death)
  Sender: FDA-Public Use
  Company Number: None

PATIENT
  Sex: Male

DRUGS (4)
  1. ACUVAIL [Suspect]
     Indication: POSTOPERATIVE ANALGESIA
     Dosage: EYE DROPS
  2. ACUVAIL [Suspect]
     Indication: POSTOPERATIVE CARE
     Dosage: EYE DROPS
  3. AGGRENOX [Suspect]
     Indication: ISCHAEMIC STROKE
     Dosage: ORAL
     Route: 048
  4. AGGRENOX [Suspect]
     Indication: PROPHYLAXIS
     Dosage: ORAL
     Route: 048

REACTIONS (6)
  - CATARACT OPERATION [None]
  - CEREBROVASCULAR ACCIDENT [None]
  - DRUG INTERACTION [None]
  - DRUG LABEL CONFUSION [None]
  - EPISTAXIS [None]
  - INCORRECT DOSE ADMINISTERED [None]
